FAERS Safety Report 8802134 (Version 2)
Quarter: 2015Q1

REPORT INFORMATION
  Report Type: Report from Study
  Country: US (occurrence: US)
  Receive Date: 20120921
  Receipt Date: 20150306
  Transmission Date: 20150721
  Serious: Yes (Death)
  Sender: FDA-Public Use
  Company Number: US-ROCHE-1093383

PATIENT
  Sex: Female

DRUGS (29)
  1. AVASTIN [Suspect]
     Active Substance: BEVACIZUMAB
     Dosage: 100CCNS
     Route: 050
     Dates: start: 20090817
  2. AVASTIN [Suspect]
     Active Substance: BEVACIZUMAB
     Dosage: 100CCNS
     Route: 050
     Dates: start: 20091221
  3. AVASTIN [Suspect]
     Active Substance: BEVACIZUMAB
     Dosage: 100CCNS
     Route: 050
     Dates: start: 20100118
  4. AVASTIN [Suspect]
     Active Substance: BEVACIZUMAB
     Dosage: 100CCNS
     Route: 050
     Dates: start: 20100301
  5. AVASTIN [Suspect]
     Active Substance: BEVACIZUMAB
     Dosage: 100CCNS
     Route: 050
     Dates: start: 20100412
  6. AVASTIN [Suspect]
     Active Substance: BEVACIZUMAB
     Dosage: 100CCNS
     Route: 050
     Dates: start: 20090928
  7. AVASTIN [Suspect]
     Active Substance: BEVACIZUMAB
     Indication: BREAST CANCER
     Dosage: 100CCNS
     Route: 050
     Dates: start: 20090727
  8. AVASTIN [Suspect]
     Active Substance: BEVACIZUMAB
     Dosage: 100CCNS
     Route: 050
     Dates: start: 20091207
  9. AVASTIN [Suspect]
     Active Substance: BEVACIZUMAB
     Dosage: 100CCNS
     Route: 050
     Dates: start: 20100201
  10. AVASTIN [Suspect]
     Active Substance: BEVACIZUMAB
     Dosage: 100CCNS
     Route: 050
     Dates: start: 20100322
  11. DECADRON [Concomitant]
     Active Substance: DEXAMETHASONE
     Route: 042
  12. AVASTIN [Suspect]
     Active Substance: BEVACIZUMAB
     Dosage: 100CCNS
     Route: 050
     Dates: start: 20091123
  13. AVASTIN [Suspect]
     Active Substance: BEVACIZUMAB
     Dosage: 100CCNS
     Route: 050
     Dates: start: 20100104
  14. AVASTIN [Suspect]
     Active Substance: BEVACIZUMAB
     Dosage: 100CCNS
     Route: 050
     Dates: start: 20100215
  15. XELODA [Suspect]
     Active Substance: CAPECITABINE
     Indication: PRODUCT USED FOR UNKNOWN INDICATION
     Route: 048
     Dates: start: 20100322
  16. BENADRYL [Concomitant]
     Active Substance: DIPHENHYDRAMINE HYDROCHLORIDE
     Route: 042
  17. AVASTIN [Suspect]
     Active Substance: BEVACIZUMAB
     Indication: METASTASES TO BONE MARROW
     Dosage: 100CCNS
     Route: 050
     Dates: start: 20090713
  18. AVASTIN [Suspect]
     Active Substance: BEVACIZUMAB
     Dosage: 100CCNS
     Route: 050
     Dates: start: 20090831
  19. AVASTIN [Suspect]
     Active Substance: BEVACIZUMAB
     Dosage: 100CCNS
     Route: 050
     Dates: start: 20091012
  20. AVASTIN [Suspect]
     Active Substance: BEVACIZUMAB
     Dosage: 100CCNS
     Route: 050
     Dates: start: 20091026
  21. ALOXI [Concomitant]
     Active Substance: PALONOSETRON HYDROCHLORIDE
     Route: 042
  22. DECADRON [Concomitant]
     Active Substance: DEXAMETHASONE
     Route: 042
  23. AVASTIN [Suspect]
     Active Substance: BEVACIZUMAB
     Dosage: 100CCNS
     Route: 050
     Dates: start: 20090914
  24. PEPCID [Concomitant]
     Active Substance: FAMOTIDINE
     Route: 042
  25. PACLITAXEL. [Concomitant]
     Active Substance: PACLITAXEL
     Indication: BREAST CANCER
     Route: 042
  26. ZOMETA [Concomitant]
     Active Substance: ZOLEDRONIC ACID
     Route: 042
  27. AVASTIN [Suspect]
     Active Substance: BEVACIZUMAB
     Indication: BONE CANCER
     Dosage: 100CCNS
     Route: 050
     Dates: start: 20090629
  28. AVASTIN [Suspect]
     Active Substance: BEVACIZUMAB
     Dosage: 100CCNS
     Route: 050
     Dates: start: 20091109
  29. BENADRYL [Concomitant]
     Active Substance: DIPHENHYDRAMINE HYDROCHLORIDE
     Route: 042

REACTIONS (10)
  - Death [Fatal]
  - Arthralgia [Unknown]
  - Muscular weakness [Unknown]
  - Weight decreased [Unknown]
  - Protein urine present [Unknown]
  - Pain [Unknown]
  - Appetite disorder [Unknown]
  - Neurological symptom [Unknown]
  - Fatigue [Unknown]
  - Malaise [Unknown]
